FAERS Safety Report 4489508-0 (Version None)
Quarter: 2004Q4

REPORT INFORMATION
  Report Type: 
  Country: None (occurrence: None)
  Receive Date: 20041101
  Receipt Date: 20041027
  Transmission Date: 20050328
  Serious: Yes (Hospitalization)
  Sender: FDA-Public Use
  Company Number: PHBS2004AU14436

PATIENT
  Age: 55 Year
  Sex: Male

DRUGS (3)
  1. CLOZAPINE [Suspect]
     Indication: SCHIZOPHRENIA
     Dosage: 400 MG/D
     Route: 065
  2. CLOZAPINE [Suspect]
     Dosage: 175 MG/D
     Route: 065
  3. CLOZAPINE [Suspect]
     Dosage: 225 MG/D
     Route: 065

REACTIONS (22)
  - BOWEL SOUNDS ABNORMAL [None]
  - BRADYCARDIA [None]
  - CATATONIA [None]
  - DRUG WITHDRAWAL SYNDROME [None]
  - EATING DISORDER [None]
  - FLUSHING [None]
  - HYPERHIDROSIS [None]
  - HYPERREFLEXIA [None]
  - IMPAIRED SELF-CARE [None]
  - MUTISM [None]
  - MYOCLONUS [None]
  - NEGATIVISM [None]
  - OVERDOSE [None]
  - POSTURING [None]
  - SOCIAL AVOIDANT BEHAVIOUR [None]
  - SOMNOLENCE [None]
  - STARING [None]
  - STUPOR [None]
  - TACHYCARDIA [None]
  - URINARY RETENTION [None]
  - WAXY FLEXIBILITY [None]
  - WHITE BLOOD CELL COUNT INCREASED [None]
